FAERS Safety Report 5139556-2 (Version None)
Quarter: 2006Q4

REPORT INFORMATION
  Report Type: 
  Country: None (occurrence: None)
  Receive Date: 20061024
  Receipt Date: 20061013
  Transmission Date: 20070319
  Serious: Yes (Life-Threatening)
  Sender: FDA-Public Use
  Company Number: 3326

PATIENT
  Age: 17 Year
  Sex: Male
  Weight: 72 kg

DRUGS (2)
  1. AMNESTEEM [Suspect]
     Indication: ACNE
     Dosage: 40 MG, QAM PO; 210 MG, HS, PO
     Route: 048
     Dates: start: 20060814, end: 20061010
  2. AMNESTEEM [Suspect]
     Indication: ACNE
     Dosage: 40 MG, QAM PO; 210 MG, HS, PO
     Route: 048
     Dates: start: 20060814, end: 20061010

REACTIONS (2)
  - OVERDOSE [None]
  - SUICIDE ATTEMPT [None]
